FAERS Safety Report 7118219-8 (Version None)
Quarter: 2010Q4

REPORT INFORMATION
  Report Type: 
  Country: None (occurrence: None)
  Receive Date: 20101123
  Receipt Date: 20101111
  Transmission Date: 20110411
  Serious: Yes (Hospitalization)
  Sender: FDA-Public Use
  Company Number: JP-JNJFOC-20101001006

PATIENT
  Age: 78 Year
  Sex: Female

DRUGS (19)
  1. ITRIZOLE [Suspect]
     Indication: BRONCHOPULMONARY ASPERGILLOSIS
     Route: 042
  2. ITRIZOLE [Suspect]
     Route: 042
  3. WARFARIN POTASSIUM [Interacting]
     Indication: ILL-DEFINED DISORDER
     Route: 048
  4. WARFARIN POTASSIUM [Interacting]
     Route: 048
  5. LASIX [Concomitant]
     Route: 065
  6. MEXILETINE HYDROCHLORIDE [Concomitant]
     Route: 065
  7. LANIRAPID [Concomitant]
     Route: 048
  8. ASPARA K [Concomitant]
     Route: 065
  9. DIOVAN [Concomitant]
     Route: 065
  10. CRAVIT [Concomitant]
     Route: 065
  11. ANTOBRON [Concomitant]
     Route: 065
  12. MUCODYNE [Concomitant]
     Route: 048
  13. AVELOX [Concomitant]
     Route: 048
  14. SPIRIVA [Concomitant]
     Route: 065
  15. MEPTIN [Concomitant]
     Route: 065
  16. ADOAIR [Concomitant]
     Route: 065
  17. LOXONIN [Concomitant]
     Route: 065
  18. MUCOSTA [Concomitant]
     Route: 048
  19. EVOXAC [Concomitant]
     Route: 048

REACTIONS (4)
  - ANAEMIA [None]
  - DRUG INTERACTION [None]
  - INTERNATIONAL NORMALISED RATIO FLUCTUATION [None]
  - MELAENA [None]
